FAERS Safety Report 6914294-1 (Version None)
Quarter: 2010Q3

REPORT INFORMATION
  Report Type: 
  Country: None (occurrence: None)
  Receive Date: 20100809
  Receipt Date: 20100802
  Transmission Date: 20110219
  Serious: Yes (Hospitalization)
  Sender: FDA-Public Use
  Company Number: B0667958A

PATIENT
  Sex: Male

DRUGS (3)
  1. AUGMENTIN '125' [Suspect]
     Indication: PRODUCT USED FOR UNKNOWN INDICATION
     Dosage: 1G SINGLE DOSE
     Route: 048
     Dates: start: 20100316, end: 20100316
  2. CORTANCYL [Concomitant]
     Indication: RHEUMATOID ARTHRITIS
     Route: 065
  3. DILTIAZEM [Concomitant]
     Route: 065

REACTIONS (8)
  - ANGIOEDEMA [None]
  - ERYTHEMA [None]
  - HISTAMINE LEVEL INCREASED [None]
  - HYPOTENSION [None]
  - IMMUNE SYSTEM DISORDER [None]
  - SINUS TACHYCARDIA [None]
  - TRYPTASE INCREASED [None]
  - TYPE I HYPERSENSITIVITY [None]
